FAERS Safety Report 6628635-6 (Version None)
Quarter: 2010Q1

REPORT INFORMATION
  Report Type: 
  Country: None (occurrence: None)
  Receive Date: 20100310
  Receipt Date: 20100310
  Transmission Date: 20100710
  Serious: Yes (Other)
  Sender: FDA-Public Use
  Company Number: None

PATIENT
  Age: 20 Year
  Sex: Female
  Weight: 55.3388 kg

DRUGS (2)
  1. LEVETIRACETAM [Suspect]
     Indication: CONVULSION
     Dosage: 500 MG Q AM 1000 MG HS
  2. LEVETIRACETAM [Suspect]
     Indication: SHUNT MALFUNCTION
     Dosage: 500 MG Q AM 1000 MG HS

REACTIONS (1)
  - CONVULSION [None]
